FAERS Safety Report 17006333 (Version 1)
Quarter: 2019Q4

REPORT INFORMATION
  Report Type: Spontaneous
  Country: US (occurrence: US)
  Receive Date: 20190926
  Receipt Date: 20190926
  Transmission Date: 20200122
  Serious: Yes (Hospitalization)
  Sender: FDA-Public Use
  Company Number: None

PATIENT
  Age: 74 Year
  Sex: Male
  Weight: 80.2 kg

DRUGS (3)
  1. VELCADE [Suspect]
     Active Substance: BORTEZOMIB
     Dates: end: 20160127
  2. DEXAMETHASONE. [Suspect]
     Active Substance: DEXAMETHASONE
     Dates: end: 20160129
  3. LENALIDOMIDE [Suspect]
     Active Substance: LENALIDOMIDE
     Dates: end: 20160309

REACTIONS (13)
  - Dyspnoea [None]
  - Fluid intake reduced [None]
  - Lung infiltration [None]
  - Sepsis [None]
  - Blood potassium decreased [None]
  - Hypophagia [None]
  - Pyrexia [None]
  - Oxygen saturation decreased [None]
  - Pulmonary oedema [None]
  - Blood creatinine increased [None]
  - Upper respiratory tract infection [None]
  - Blood glucose decreased [None]
  - Mental status changes [None]

NARRATIVE: CASE EVENT DATE: 20160311
